FAERS Safety Report 11815583 (Version 2)
Quarter: 2015Q4

REPORT INFORMATION
  Report Type: Spontaneous
  Country: CA (occurrence: CA)
  Receive Date: 20151209
  Receipt Date: 20151221
  Transmission Date: 20160305
  Serious: Yes (Other)
  Sender: FDA-Public Use
  Company Number: CA-BAXTER-2015BAX062393

PATIENT
  Age: 49 Year
  Sex: Female

DRUGS (2)
  1. DIANEAL W/ DEXTROSE 2.5% [Suspect]
     Active Substance: CALCIUM CHLORIDE\DEXTROSE\MAGNESIUM CHLORIDE\SODIUM CHLORIDE\SODIUM LACTATE
     Indication: PERITONEAL DIALYSIS
     Route: 033
  2. EXTRANEAL [Suspect]
     Active Substance: CALCIUM CHLORIDE\ICODEXTRIN\MAGNESIUM CHLORIDE\SODIUM CHLORIDE\SODIUM LACTATE
     Indication: PERITONEAL DIALYSIS
     Route: 033

REACTIONS (4)
  - Arterial occlusive disease [Not Recovered/Not Resolved]
  - Cardiac disorder [Unknown]
  - Chest pain [Not Recovered/Not Resolved]
  - Vascular occlusion [Not Recovered/Not Resolved]

NARRATIVE: CASE EVENT DATE: 201510
